FAERS Safety Report 14858007 (Version 1)
Quarter: 2018Q2

REPORT INFORMATION
  Report Type: Spontaneous
  Country: US (occurrence: US)
  Receive Date: 20180508
  Receipt Date: 20180508
  Transmission Date: 20180711
  Serious: Yes (Hospitalization, Other)
  Sender: FDA-Public Use
  Company Number: US-ASTELLAS-2018US021225

PATIENT
  Age: 51 Year
  Sex: Male

DRUGS (1)
  1. TARCEVA [Suspect]
     Active Substance: ERLOTINIB HYDROCHLORIDE
     Indication: LUNG NEOPLASM MALIGNANT
     Dosage: 150 MG, DAILY
     Route: 048
     Dates: start: 20180403

REACTIONS (2)
  - Dyspnoea [Unknown]
  - Pneumothorax [Unknown]

NARRATIVE: CASE EVENT DATE: 20180408
